FAERS Safety Report 5651788-3 (Version None)
Quarter: 2008Q1

REPORT INFORMATION
  Report Type: 
  Country: None (occurrence: None)
  Receive Date: 20080305
  Receipt Date: 20080222
  Transmission Date: 20080703
  Serious: Yes (Hospitalization)
  Sender: FDA-Public Use
  Company Number: IT-PFIZER INC-2008017347

PATIENT
  Sex: Male

DRUGS (2)
  1. SUTENT [Suspect]
     Indication: RENAL CELL CARCINOMA
     Route: 048
     Dates: start: 20080112, end: 20080211
  2. COUMADIN [Concomitant]
     Route: 048

REACTIONS (4)
  - ASTHENIA [None]
  - DYSPNOEA [None]
  - PYREXIA [None]
  - VASCULITIS [None]
